FAERS Safety Report 24386360 (Version 2)
Quarter: 2024Q4

REPORT INFORMATION
  Report Type: Report from Study
  Country: US (occurrence: US)
  Receive Date: 20241001
  Receipt Date: 20241022
  Transmission Date: 20250115
  Serious: Yes (Disabling)
  Sender: ABBVIE
  Company Number: US-ABBVIE-5886515

PATIENT
  Sex: Female

DRUGS (1)
  1. HUMIRA [Suspect]
     Active Substance: ADALIMUMAB
     Indication: Uveitis
     Route: 058
     Dates: start: 20210101

REACTIONS (7)
  - Visual impairment [Unknown]
  - Pre-existing condition improved [Unknown]
  - Impaired work ability [Unknown]
  - Rheumatoid arthritis [Unknown]
  - Therapeutic response unexpected [Unknown]
  - Chorioretinal disorder [Unknown]
  - Eye inflammation [Recovering/Resolving]
